FAERS Safety Report 13351617 (Version 2)
Quarter: 2017Q1

REPORT INFORMATION
  Report Type: Other
  Country: IT (occurrence: IT)
  Receive Date: 20170320
  Receipt Date: 20170330
  Transmission Date: 20170429
  Serious: Yes (Other)
  Sender: FDA-Public Use
  Company Number: IT-TAKEDA-2017TEU001149

PATIENT
  Age: 62 Year
  Sex: Female

DRUGS (2)
  1. DELTACORTENE [Interacting]
     Active Substance: PREDNISONE
     Indication: BREAST INFLAMMATION
     Dosage: UNK
     Route: 048
     Dates: start: 20160405, end: 20160419
  2. COMPETACT [Suspect]
     Active Substance: METFORMIN HYDROCHLORIDE\PIOGLITAZONE HYDROCHLORIDE
     Indication: DIABETES MELLITUS
     Dosage: UNK
     Route: 048
     Dates: start: 20150101, end: 20160419

REACTIONS (4)
  - Blood pressure systolic increased [Unknown]
  - Glycosuria [Unknown]
  - Drug interaction [Unknown]
  - Hyperglycaemia [Unknown]

NARRATIVE: CASE EVENT DATE: 20160418
